FAERS Safety Report 23589636 (Version 1)
Quarter: 2024Q1

REPORT INFORMATION
  Report Type: Spontaneous
  Country: NL (occurrence: NL)
  Receive Date: 20240304
  Receipt Date: 20240304
  Transmission Date: 20240410
  Serious: Yes (Life-Threatening, Hospitalization, Congenital Anomaly, Other)
  Sender: FDA-Public Use
  Company Number: NL-JUBILANT CADISTA PHARMACEUTICALS-2024NL000258

PATIENT
  Age: 4 Day
  Sex: Female
  Weight: 3.8 kg

DRUGS (1)
  1. CITALOPRAM HYDROBROMIDE [Suspect]
     Active Substance: CITALOPRAM HYDROBROMIDE
     Indication: Product used for unknown indication
     Dosage: 15 MG, ONCE PER DAY
     Dates: start: 20230101

REACTIONS (2)
  - Newborn persistent pulmonary hypertension [Recovering/Resolving]
  - Maternal exposure during pregnancy [Unknown]
